FAERS Safety Report 21287103 (Version 2)
Quarter: 2023Q1

REPORT INFORMATION
  Report Type: Other
  Country: GB (occurrence: GB)
  Receive Date: 20220902
  Receipt Date: 20230113
  Transmission Date: 20230418
  Serious: Yes (Hospitalization, Other)
  Sender: FDA-Public Use
  Company Number: None

PATIENT
  Sex: Male

DRUGS (8)
  1. PREDNISOLONE [Suspect]
     Active Substance: PREDNISOLONE
     Indication: Product used for unknown indication
     Dosage: UNK, QD (1 UNSPECIFIED UNITS \QD)
     Route: 065
  2. PREDNISOLONE [Suspect]
     Active Substance: PREDNISOLONE
     Dosage: 5 MILLIGRAM
     Route: 065
  3. TACROLIMUS [Suspect]
     Active Substance: TACROLIMUS
     Indication: Product used for unknown indication
     Dosage: 1 MILLIGRAM, 1 MG ON (EVERY NIGHT) (STRENGTH 2 MG OM)
     Route: 065
  4. TACROLIMUS [Suspect]
     Active Substance: TACROLIMUS
     Dosage: UNK; BID (ON/OM; EVERY NIGHT/EVERY MORNING) (2 UNSPECIFIED UNITS)
     Route: 065
  5. TACROLIMUS [Suspect]
     Active Substance: TACROLIMUS
     Dosage: 2 MILLIGRAM, EVERY 12 HRS, 2 MG, Q12H AT 10:00 (EVERY MORNING)
     Route: 065
     Dates: start: 20220808
  6. TACROLIMUS [Suspect]
     Active Substance: TACROLIMUS
     Dosage: 1 MILLIGRAM, EVERY 12 HRS, 1 MG, Q12H AT 22:00 (EVERY NIGHT)
     Route: 065
  7. RAPAMUNE [Suspect]
     Active Substance: SIROLIMUS
     Indication: Product used for unknown indication
     Dosage: 2 MILLIGRAM PER DAY, 2 MG, QD
     Route: 065
  8. RAPAMUNE [Suspect]
     Active Substance: SIROLIMUS
     Dosage: 1 MILLIGRAM
     Route: 065

REACTIONS (2)
  - Renal injury [Unknown]
  - Transplant rejection [Unknown]
